FAERS Safety Report 5782306-7 (Version None)
Quarter: 2008Q2

REPORT INFORMATION
  Report Type: 
  Country: None (occurrence: None)
  Receive Date: 20080623
  Receipt Date: 20080603
  Transmission Date: 20081010
  Serious: No
  Sender: FDA-Public Use
  Company Number: US-BOEHRINGER INGELHEIM GMBH, GERMANY-2008-BP-08651BP

PATIENT
  Age: 77 Year
  Sex: Female

DRUGS (5)
  1. MIRAPEX [Suspect]
     Indication: RESTLESS LEGS SYNDROME
     Route: 048
     Dates: start: 20040101
  2. MICARDIS [Concomitant]
     Indication: HYPERTENSION
  3. ATENOLOL [Concomitant]
     Indication: HYPERTENSION
  4. ASPIRIN [Concomitant]
     Indication: HYPERTENSION
  5. COUMADIN [Concomitant]
     Indication: CORONARY ARTERIAL STENT INSERTION

REACTIONS (3)
  - COORDINATION ABNORMAL [None]
  - MUSCLE SPASMS [None]
  - TREMOR [None]
